FAERS Safety Report 25504231 (Version 2)
Quarter: 2025Q3

REPORT INFORMATION
  Report Type: Report from Study
  Country: US (occurrence: US)
  Receive Date: 20250702
  Receipt Date: 20250715
  Transmission Date: 20251021
  Serious: Yes (Hospitalization)
  Sender: TAKEDA
  Company Number: US-TAKEDA-US202022711

PATIENT
  Age: 29 Year
  Sex: Male
  Weight: 110 kg

DRUGS (12)
  1. LANADELUMAB [Suspect]
     Active Substance: LANADELUMAB
     Indication: Hereditary angioedema with normal C1 esterase inhibitor
     Dosage: 2 MILLILITER, Q2WEEKS
     Dates: start: 20191003
  2. LANADELUMAB [Suspect]
     Active Substance: LANADELUMAB
     Indication: Immune system disorder
     Dosage: 300 MILLIGRAM, Q2WEEKS
     Dates: start: 20191009
  3. LANADELUMAB [Suspect]
     Active Substance: LANADELUMAB
     Indication: Leukocyte adhesion deficiency
     Dosage: 300 MILLIGRAM, Q2WEEKS
     Dates: start: 20191010
  4. LANADELUMAB [Suspect]
     Active Substance: LANADELUMAB
     Dosage: 300 MILLIGRAM, Q2WEEKS
     Dates: start: 201910
  5. LANADELUMAB [Suspect]
     Active Substance: LANADELUMAB
     Dosage: 300 MILLIGRAM, Q2WEEKS
     Dates: start: 20210812
  6. LANADELUMAB [Suspect]
     Active Substance: LANADELUMAB
     Dosage: 300 MILLIGRAM, Q4WEEKS
     Dates: start: 202109
  7. LANADELUMAB [Suspect]
     Active Substance: LANADELUMAB
     Dosage: 300 MILLIGRAM, Q2WEEKS
     Dates: start: 20211014
  8. LANADELUMAB [Suspect]
     Active Substance: LANADELUMAB
     Dosage: 2 MILLILITER, Q2WEEKS
  9. LANADELUMAB [Suspect]
     Active Substance: LANADELUMAB
     Dosage: 2 MILLILITER, Q4WEEKS
  10. LANADELUMAB [Suspect]
     Active Substance: LANADELUMAB
     Dosage: 300 MILLIGRAM, Q2WEEKS
  11. LANADELUMAB [Suspect]
     Active Substance: LANADELUMAB
     Dosage: UNK UNK, Q2WEEKS
  12. AMOXICILLIN [Suspect]
     Active Substance: AMOXICILLIN
     Indication: Product used for unknown indication

REACTIONS (13)
  - Drug hypersensitivity [Unknown]
  - Tooth infection [Unknown]
  - COVID-19 [Recovered/Resolved]
  - Fatigue [Unknown]
  - Insomnia [Unknown]
  - Dermatitis contact [Unknown]
  - Product dose omission issue [Unknown]
  - Product use complaint [Unknown]
  - Weight increased [Unknown]
  - Weight decreased [Unknown]
  - Pyrexia [Unknown]
  - Illness [Unknown]
  - Hereditary angioedema [Recovered/Resolved]

NARRATIVE: CASE EVENT DATE: 20200801
